FAERS Safety Report 20961462 (Version 1)
Quarter: 2022Q2

REPORT INFORMATION
  Report Type: Report from Study
  Country: CA (occurrence: CA)
  Receive Date: 20220615
  Receipt Date: 20220615
  Transmission Date: 20220721
  Serious: Yes (Other)
  Sender: FDA-Public Use
  Company Number: CA-Accord-265790

PATIENT
  Age: 40 Year
  Sex: Male

DRUGS (1)
  1. METHOTREXATE [Suspect]
     Active Substance: METHOTREXATE
     Indication: Corneal epithelial downgrowth
     Dosage: 800 UG/0.2 ML IN A WEEK, 400 UG/0.1 ML
     Route: 031

REACTIONS (3)
  - Off label use [Unknown]
  - Retinal pigment epitheliopathy [Unknown]
  - Retinal artery occlusion [Unknown]
